FAERS Safety Report 5489366-1 (Version None)
Quarter: 2007Q4

REPORT INFORMATION
  Report Type: 
  Country: None (occurrence: None)
  Receive Date: 20071018
  Receipt Date: 20071009
  Transmission Date: 20080405
  Serious: Yes (Hospitalization)
  Sender: FDA-Public Use
  Company Number: HQWYE554015AUG07

PATIENT
  Sex: Female

DRUGS (10)
  1. HYPEN [Suspect]
     Indication: BACK PAIN
     Dosage: NOT SPECIFIED
     Route: 048
     Dates: start: 20060519
  2. HYPEN [Suspect]
     Route: 048
     Dates: start: 20070723, end: 20070728
  3. SULFAMETHOXAZOLE AND TRIMETHOPRIM [Concomitant]
     Dosage: NOT SPECIFIED
     Dates: start: 20061228
  4. REBAMIPIDE [Concomitant]
     Dosage: NOT SPECIFIED
     Dates: start: 20060519
  5. CARBOCISTEINE [Concomitant]
     Dosage: NOT SPECIFIED
     Dates: start: 20061206
  6. LIMAPROST [Concomitant]
     Dosage: NOT SPECIFIED
     Dates: start: 20060519
  7. ALENDRONATE SODIUM [Concomitant]
     Dosage: NOT SPECIFIED
     Dates: start: 20060519, end: 20061005
  8. RISEDRONATE SODIUM [Concomitant]
     Dosage: NOT SPECIFIED
     Dates: start: 20061006
  9. FAMOTIDINE [Concomitant]
     Dosage: NOT SPECIFIED
     Dates: start: 20061228
  10. EPERISONE HYDROCHLORIDE [Concomitant]
     Dosage: NOT SPECIFIED
     Dates: start: 20060519

REACTIONS (2)
  - CONDITION AGGRAVATED [None]
  - INTERSTITIAL LUNG DISEASE [None]
